FAERS Safety Report 4392309-5 (Version None)
Quarter: 2004Q3

REPORT INFORMATION
  Report Type: 
  Country: None (occurrence: None)
  Receive Date: 20040702
  Receipt Date: 20040621
  Transmission Date: 20050211
  Serious: Yes (Other)
  Sender: FDA-Public Use
  Company Number: US-JNJFOC-20040403585

PATIENT
  Age: 76 Year
  Sex: Male

DRUGS (4)
  1. DURAGESIC [Suspect]
     Indication: PAIN
     Dosage: 200 UG/HR, 1 IN 48 HOUR, TRANSDERMAL
     Route: 062
     Dates: start: 19960101, end: 20040101
  2. DURAGESIC [Suspect]
     Indication: PAIN
     Dosage: 200 UG/HR, 1 IN 48 HOUR, TRANSDERMAL
     Route: 062
     Dates: start: 20040101
  3. MIRALAX [Suspect]
  4. SENOKOT [Concomitant]

REACTIONS (6)
  - DERMATITIS [None]
  - FEELING ABNORMAL [None]
  - NAUSEA [None]
  - NEUROPATHY PERIPHERAL [None]
  - PAIN IN EXTREMITY [None]
  - PROSTATE CANCER [None]
